FAERS Safety Report 9062031 (Version 1)
Quarter: 2013Q1

REPORT INFORMATION
  Report Type: Spontaneous
  Country: US (occurrence: US)
  Receive Date: 20130127
  Receipt Date: 20130127
  Transmission Date: 20140127
  Serious: No
  Sender: FDA-Public Use
  Company Number: US-ASTRAZENECA-2013SE04050

PATIENT
  Age: 57 Year
  Sex: Female
  Weight: 47.2 kg

DRUGS (5)
  1. NEXIUM [Suspect]
     Indication: GASTROOESOPHAGEAL REFLUX DISEASE
     Route: 048
     Dates: start: 2006, end: 201211
  2. CELEBREX [Concomitant]
  3. PREMARIN [Concomitant]
  4. TRAZADONE [Concomitant]
     Indication: SLEEP DISORDER
  5. PAXIL [Concomitant]

REACTIONS (5)
  - Fungal oesophagitis [Not Recovered/Not Resolved]
  - Weight decreased [Not Recovered/Not Resolved]
  - Nausea [Not Recovered/Not Resolved]
  - Vomiting [Not Recovered/Not Resolved]
  - Anaemia [Not Recovered/Not Resolved]
